FAERS Safety Report 12230165 (Version 1)
Quarter: 2016Q1

REPORT INFORMATION
  Report Type: Spontaneous
  Country: US (occurrence: None)
  Receive Date: 20160331
  Receipt Date: 20160331
  Transmission Date: 20160526
  Serious: No
  Sender: FDA-Public Use
  Company Number: None

PATIENT
  Age: 52 Year
  Sex: Female

DRUGS (1)
  1. SILDENAFIL. [Suspect]
     Active Substance: SILDENAFIL
     Indication: PULMONARY FIBROSIS
     Route: 048
     Dates: start: 20131017

REACTIONS (2)
  - Flushing [None]
  - Nasal congestion [None]

NARRATIVE: CASE EVENT DATE: 20160329
